FAERS Safety Report 5201961-3 (Version None)
Quarter: 2007Q1

REPORT INFORMATION
  Report Type: 
  Country: None (occurrence: None)
  Receive Date: 20070104
  Receipt Date: 20070104
  Transmission Date: 20070707
  Serious: Yes (Hospitalization)
  Sender: FDA-Public Use
  Company Number: None

PATIENT
  Sex: Female
  Weight: 104 kg

DRUGS (3)
  1. CYCLOPHOSPHAMIDE [Suspect]
     Indication: ACUTE LYMPHOCYTIC LEUKAEMIA
     Dosage: 2080
     Dates: end: 20061213
  2. CYTARABINE [Suspect]
     Dosage: 8400 MG
     Dates: end: 20061214
  3. METHOTREXATE [Suspect]
     Dosage: 15 MG
     Dates: end: 20061213

REACTIONS (13)
  - DRUG ERUPTION [None]
  - DYSPNOEA [None]
  - FIBRIN D DIMER INCREASED [None]
  - FLUID OVERLOAD [None]
  - NO THERAPEUTIC RESPONSE [None]
  - OXYGEN SATURATION DECREASED [None]
  - PLEURAL EFFUSION [None]
  - RASH MACULAR [None]
  - RENAL FAILURE ACUTE [None]
  - SPUTUM CULTURE POSITIVE [None]
  - STAPHYLOCOCCAL INFECTION [None]
  - TACHYPNOEA [None]
  - WEIGHT INCREASED [None]
